FAERS Safety Report 17650080 (Version 1)
Quarter: 2020Q2

REPORT INFORMATION
  Report Type: Spontaneous
  Country: GB (occurrence: GB)
  Receive Date: 20200409
  Receipt Date: 20200409
  Transmission Date: 20200713
  Serious: Yes (Other)
  Sender: FDA-Public Use
  Company Number: GB-TEVA-2020-GB-1218854

PATIENT
  Age: 36 Year
  Sex: Female

DRUGS (5)
  1. VENLAFAXINE [Interacting]
     Active Substance: VENLAFAXINE HYDROCHLORIDE
     Indication: MIXED ANXIETY AND DEPRESSIVE DISORDER
     Dosage: 225 MILLIGRAM DAILY; IN THE MORNING
     Route: 065
  2. PREGABALIN. [Suspect]
     Active Substance: PREGABALIN
     Indication: MIXED ANXIETY AND DEPRESSIVE DISORDER
     Dosage: 150 MILLIGRAM DAILY;
     Route: 065
  3. PREGABALIN. [Interacting]
     Active Substance: PREGABALIN
     Indication: MIXED ANXIETY AND DEPRESSIVE DISORDER
     Dosage: THREE TIMES A DAY
     Route: 065
  4. PREGABALIN. [Interacting]
     Active Substance: PREGABALIN
     Indication: MIXED ANXIETY AND DEPRESSIVE DISORDER
     Dosage: 300 MILLIGRAM DAILY;
     Route: 065
  5. LORAZEPAM. [Concomitant]
     Active Substance: LORAZEPAM
     Indication: MIXED ANXIETY AND DEPRESSIVE DISORDER
     Dosage: 1-2MG AS REQUIRED (MAX 4MG/24H)
     Route: 065

REACTIONS (3)
  - Hallucination, visual [Recovered/Resolved]
  - Agitation [Recovered/Resolved]
  - Drug interaction [Recovered/Resolved]
